FAERS Safety Report 17405505 (Version 1)
Quarter: 2020Q1

REPORT INFORMATION
  Report Type: Spontaneous
  Country: IT (occurrence: IT)
  Receive Date: 20200212
  Receipt Date: 20200212
  Transmission Date: 20200409
  Serious: Yes (Other)
  Sender: FDA-Public Use
  Company Number: IT-APOTEX-2020AP007556

PATIENT
  Age: 85 Year
  Sex: Male

DRUGS (4)
  1. SEROXAT [Suspect]
     Active Substance: PAROXETINE HYDROCHLORIDE
     Dosage: 1 DF, QD
     Route: 065
     Dates: start: 199905, end: 20010919
  2. SEROXAT [Suspect]
     Active Substance: PAROXETINE HYDROCHLORIDE
     Dosage: 0.5 DF, QD
     Route: 065
     Dates: start: 199809
  3. SEROXAT [Suspect]
     Active Substance: PAROXETINE HYDROCHLORIDE
     Dosage: 2 DF, QD
     Route: 065
     Dates: start: 199903
  4. SEROXAT [Suspect]
     Active Substance: PAROXETINE HYDROCHLORIDE
     Indication: PRODUCT USED FOR UNKNOWN INDICATION
     Dosage: 1 DF, QD
     Route: 065
     Dates: start: 199802, end: 199804

REACTIONS (5)
  - Nausea [Unknown]
  - Therapeutic product effect incomplete [Unknown]
  - Tension [Recovering/Resolving]
  - Adverse drug reaction [Unknown]
  - Anxiety [Recovering/Resolving]

NARRATIVE: CASE EVENT DATE: 20011024
